FAERS Safety Report 11768783 (Version 2)
Quarter: 2016Q1

REPORT INFORMATION
  Report Type: Spontaneous
  Country: US (occurrence: US)
  Receive Date: 20151123
  Receipt Date: 20160114
  Transmission Date: 20160525
  Serious: No
  Sender: FDA-Public Use
  Company Number: CHPA2015US013924

PATIENT
  Sex: Female

DRUGS (2)
  1. VOLTAREN [Suspect]
     Active Substance: DICLOFENAC SODIUM
     Indication: NEUROPATHY PERIPHERAL
     Dosage: NOT EVEN AS BIG AS A PEA OR BIT MORE, EVERY NIGHT
     Route: 065
     Dates: start: 201511
  2. VOLTAREN [Suspect]
     Active Substance: DICLOFENAC SODIUM
     Indication: MUSCULOSKELETAL PAIN

REACTIONS (5)
  - Therapeutic response unexpected [Unknown]
  - Wrong technique in product usage process [Unknown]
  - Inappropriate schedule of drug administration [Unknown]
  - Product use issue [Unknown]
  - Drug administered at inappropriate site [Unknown]

NARRATIVE: CASE EVENT DATE: 201511
